FAERS Safety Report 5781831-2 (Version None)
Quarter: 2008Q2

REPORT INFORMATION
  Report Type: 
  Country: None (occurrence: None)
  Receive Date: 20080623
  Receipt Date: 20080619
  Transmission Date: 20081010
  Serious: Yes (Death, Other)
  Sender: FDA-Public Use
  Company Number: BE-AVENTIS-200812242EU

PATIENT
  Age: 89 Year
  Sex: Female

DRUGS (3)
  1. CLEXANE [Suspect]
     Indication: THROMBOSIS PROPHYLAXIS
     Route: 058
     Dates: start: 20080308, end: 20080318
  2. ISOTEN [Concomitant]
  3. BETASERC [Concomitant]
     Dosage: DOSE: UNK

REACTIONS (5)
  - ANAEMIA [None]
  - GENERAL PHYSICAL HEALTH DETERIORATION [None]
  - PETECHIAE [None]
  - PURPURA [None]
  - RENAL FAILURE [None]
